FAERS Safety Report 8793262 (Version 1)
Quarter: 2012Q4

REPORT INFORMATION
  Report Type: 
  Country: CH (occurrence: CH)
  Receive Date: 20120917
  Receipt Date: 20120917
  Transmission Date: 20130627
  Serious: Yes (Other)
  Sender: FDA-Public Use
  Company Number: CH-PFIZER INC-2012196954

PATIENT
  Age: 49 Year
  Sex: Male

DRUGS (1)
  1. SORTIS [Suspect]
     Indication: TYPE IIA HYPERLIPIDAEMIA
     Dosage: 20 mg, 1x/day
     Route: 048
     Dates: start: 2010

REACTIONS (4)
  - Alanine aminotransferase increased [Recovering/Resolving]
  - Serum ferritin increased [Not Recovered/Not Resolved]
  - Gamma-glutamyltransferase increased [Recovering/Resolving]
  - Aspartate aminotransferase increased [Unknown]
